FAERS Safety Report 8564155-X (Version None)
Quarter: 2012Q3

REPORT INFORMATION
  Report Type: 
  Country: None (occurrence: None)
  Receive Date: 20120803
  Receipt Date: 20120723
  Transmission Date: 20120928
  Serious: No
  Sender: FDA-Public Use
  Company Number: US-JNJFOC-20120701299

PATIENT
  Sex: Female
  Weight: 72.58 kg

DRUGS (4)
  1. UNKNOWN MEDICATION [Concomitant]
     Indication: AMYOTROPHIC LATERAL SCLEROSIS
     Route: 065
  2. INVEGA SUSTENNA [Suspect]
     Indication: SCHIZOPHRENIA
     Route: 030
     Dates: end: 20120409
  3. ABILIFY [Concomitant]
     Indication: SCHIZOPHRENIA
     Route: 065
  4. XANAX [Concomitant]
     Indication: SOCIAL PHOBIA
     Route: 065

REACTIONS (5)
  - DRUG ADMINISTERED AT INAPPROPRIATE SITE [None]
  - INJECTION SITE PAIN [None]
  - INJECTION SITE INFLAMMATION [None]
  - INJECTION SITE SWELLING [None]
  - MUSCLE SPASMS [None]
